FAERS Safety Report 18253653 (Version 1)
Quarter: 2020Q3

REPORT INFORMATION
  Report Type: Spontaneous
  Country: GB (occurrence: GB)
  Receive Date: 20200910
  Receipt Date: 20200910
  Transmission Date: 20201103
  Serious: Yes (Other)
  Sender: FDA-Public Use
  Company Number: GB-PFIZER INC-2020345704

PATIENT
  Sex: Male

DRUGS (2)
  1. TAZOCIN [Suspect]
     Active Substance: PIPERACILLIN SODIUM\TAZOBACTAM SODIUM
     Indication: OSTEOMYELITIS ACUTE
     Dosage: 13.5 G, 1X/DAY
     Route: 042
  2. FLUCLOXACILLIN [Suspect]
     Active Substance: FLUCLOXACILLIN
     Indication: OSTEOMYELITIS
     Dosage: 8 G, 1X/DAY
     Route: 042

REACTIONS (3)
  - Product use in unapproved indication [Unknown]
  - Jaundice cholestatic [Not Recovered/Not Resolved]
  - Off label use [Unknown]
